FAERS Safety Report 6841922-1 (Version None)
Quarter: 2010Q3

REPORT INFORMATION
  Report Type: 
  Country: None (occurrence: None)
  Receive Date: 20100714
  Receipt Date: 20070922
  Transmission Date: 20110219
  Serious: No
  Sender: FDA-Public Use
  Company Number: US-PFIZER INC-2007059575

PATIENT
  Sex: Male
  Weight: 72.7 kg

DRUGS (7)
  1. CHANTIX [Suspect]
     Indication: SMOKING CESSATION THERAPY
     Dates: start: 20070305
  2. NORVASC [Concomitant]
  3. TOPAMAX [Concomitant]
     Indication: TREMOR
  4. NEXIUM [Concomitant]
     Indication: GASTRIC DISORDER
  5. ACETYLSALICYLIC ACID [Concomitant]
  6. CALCIUM [Concomitant]
  7. MULTI-VITAMINS [Concomitant]

REACTIONS (2)
  - ABNORMAL DREAMS [None]
  - THERAPEUTIC RESPONSE UNEXPECTED [None]
